FAERS Safety Report 9782981 (Version 2)
Quarter: 2013Q4

REPORT INFORMATION
  Report Type: Report from Study
  Country: JP (occurrence: JP)
  Receive Date: 20131226
  Receipt Date: 20131226
  Transmission Date: 20140711
  Serious: Yes (Hospitalization)
  Sender: FDA-Public Use
  Company Number: JP-UCBSA-054058

PATIENT
  Age: 45 Year
  Sex: Male

DRUGS (12)
  1. CERTOLIZUMAB PEGOL [Suspect]
     Indication: RHEUMATOID ARTHRITIS
     Route: 058
     Dates: start: 201203
  2. CERTOLIZUMAB PEGOL [Suspect]
     Indication: RHEUMATOID ARTHRITIS
     Dosage: LOADING DOSE 400 MG; W0, W2, W4 FOLLOWED BY 200 MG/2WEEKS
     Route: 058
     Dates: start: 20111209, end: 20120315
  3. RHEUMATREX [Suspect]
     Indication: RHEUMATOID ARTHRITIS
     Route: 048
     Dates: start: 20120303, end: 20120311
  4. RHEUMATREX [Suspect]
     Indication: RHEUMATOID ARTHRITIS
     Route: 048
     Dates: start: 20111210
  5. PL [Suspect]
     Indication: PYREXIA
     Dosage: DAILY DOSE: 3 G
     Route: 048
     Dates: start: 20120315, end: 20120317
  6. REBAMIPIDE [Concomitant]
     Dosage: DAILY DOSE: 200 MG
     Dates: start: 20111117, end: 20120317
  7. CELECOXIB [Concomitant]
     Dosage: DIALY DOSE: 400 MG
     Dates: start: 20111117, end: 20120317
  8. FOLIC ACID [Concomitant]
     Dates: start: 20111226, end: 20120312
  9. BETAMETHASONE BUTYRATE PROPIONATE [Concomitant]
     Dates: start: 20111228
  10. LANSOPRAZOLE [Concomitant]
     Dosage: DAILY DOSE: 15 MG
     Dates: start: 20120107, end: 20120317
  11. DICLOFENAC SODIUM [Concomitant]
     Dates: start: 20120315, end: 20120319
  12. ECABET SODIUM HYDRATE [Concomitant]
     Dates: start: 20120301, end: 20120317

REACTIONS (1)
  - Enteritis [Recovered/Resolved]
